FAERS Safety Report 13338440 (Version 3)
Quarter: 2017Q1

REPORT INFORMATION
  Report Type: Spontaneous
  Country: FR (occurrence: FR)
  Receive Date: 20170315
  Receipt Date: 20170330
  Transmission Date: 20170428
  Serious: Yes (Death, Hospitalization)
  Sender: FDA-Public Use
  Company Number: FR-PFIZER INC-2017107699

PATIENT
  Age: 68 Year
  Sex: Female

DRUGS (8)
  1. AFINITOR [Suspect]
     Active Substance: EVEROLIMUS
     Indication: BREAST CANCER METASTATIC
     Dosage: UNK
     Route: 048
     Dates: start: 201609, end: 20170201
  2. AROMASINE [Suspect]
     Active Substance: EXEMESTANE
     Indication: BREAST CANCER METASTATIC
     Dosage: UNK
     Route: 048
     Dates: start: 201609
  3. LERCANIDIPINE HYDROCHLORIDE W/VALSARTAN [Concomitant]
     Route: 048
  4. ESIDREX [Concomitant]
     Active Substance: HYDROCHLOROTHIAZIDE
     Route: 048
  5. BISOCE [Concomitant]
     Active Substance: BISOPROLOL
     Route: 048
  6. OGASTORO [Concomitant]
     Active Substance: LANSOPRAZOLE
     Route: 048
  7. INNOHEP [Concomitant]
     Active Substance: TINZAPARIN SODIUM
     Indication: PULMONARY EMBOLISM
     Dosage: 14000 IU, UNK
     Route: 058
     Dates: start: 2015
  8. METFORMIN [Concomitant]
     Active Substance: METFORMIN HYDROCHLORIDE
     Dosage: 500 MG, 2X/DAY
     Route: 048

REACTIONS (3)
  - Pulmonary arterial hypertension [Fatal]
  - Right ventricular failure [Fatal]
  - Neoplasm progression [Unknown]

NARRATIVE: CASE EVENT DATE: 20170207
